FAERS Safety Report 4350000-5 (Version None)
Quarter: 2004Q2

REPORT INFORMATION
  Report Type: 
  Country: None (occurrence: None)
  Receive Date: 20040428
  Receipt Date: 20040428
  Transmission Date: 20050107
  Serious: Yes (Life-Threatening, Hospitalization)
  Sender: FDA-Public Use
  Company Number: None

PATIENT
  Sex: Male

DRUGS (10)
  1. CARBOPLATIN [Suspect]
     Indication: METASTASIS
     Dosage: 630 MG ONCE IV
     Route: 042
     Dates: start: 20040114, end: 20040114
  2. CARBOPLATIN [Suspect]
     Indication: SQUAMOUS CELL CARCINOMA
     Dosage: 630 MG ONCE IV
     Route: 042
     Dates: start: 20040114, end: 20040114
  3. GEMCITABINE [Suspect]
     Indication: METASTASIS
     Dosage: 1748 MG ONCE IV
     Route: 042
     Dates: start: 20040114, end: 20040114
  4. GEMCITABINE [Suspect]
     Indication: SQUAMOUS CELL CARCINOMA
     Dosage: 1748 MG ONCE IV
     Route: 042
     Dates: start: 20040114, end: 20040114
  5. PROCHLORPERAZINE [Concomitant]
  6. FUROSEMIDE [Concomitant]
  7. KCL TAB [Concomitant]
  8. PILOCARPINE [Concomitant]
  9. PAROXETINE HCL [Concomitant]
  10. OXYCODONE [Concomitant]

REACTIONS (4)
  - ERYTHEMA [None]
  - OEDEMA [None]
  - PAIN IN EXTREMITY [None]
  - PANCYTOPENIA [None]
